FAERS Safety Report 5342319-6 (Version None)
Quarter: 2007Q2

REPORT INFORMATION
  Report Type: 
  Country: None (occurrence: None)
  Receive Date: 20070416
  Receipt Date: 20070107
  Transmission Date: 20071010
  Serious: No
  Sender: FDA-Public Use
  Company Number: 2007SP000072

PATIENT
  Age: 59 Year
  Sex: Female
  Weight: 77.1115 kg

DRUGS (8)
  1. LUNESTA [Suspect]
     Indication: INSOMNIA
     Dosage: SEE IMAGE
     Route: 048
     Dates: start: 20050101
  2. VOSPIRE [Concomitant]
  3. SINGULAIR [Concomitant]
  4. ALLEGRA D 24 HOUR [Concomitant]
  5. FLOVENT [Concomitant]
  6. RHINOCORT [Concomitant]
  7. ASTELIN [Concomitant]
  8. ETANERCEPT [Concomitant]

REACTIONS (1)
  - DRUG EFFECT DECREASED [None]
